FAERS Safety Report 9019688 (Version 1)
Quarter: 2013Q1

REPORT INFORMATION
  Report Type: Report from Study
  Country: FR (occurrence: FR)
  Receive Date: 20130118
  Receipt Date: 20130118
  Transmission Date: 20140127
  Serious: Yes (Hospitalization)
  Sender: FDA-Public Use
  Company Number: FR-009507513-1301FRA005561

PATIENT
  Age: 13 None
  Sex: Male

DRUGS (4)
  1. TEMOZOLOMIDE [Suspect]
     Indication: PINEALOBLASTOMA
     Dosage: 200 MG, QD
     Route: 048
     Dates: start: 20120605, end: 20120609
  2. TEMOZOLOMIDE [Suspect]
     Dosage: 200 MG, QD
     Dates: start: 20120703, end: 20120707
  3. DEPAKINE [Concomitant]
     Indication: CONVULSION PROPHYLAXIS
     Dosage: UNK
     Dates: start: 201110
  4. KEPPRA [Concomitant]
     Indication: CONVULSION PROPHYLAXIS
     Dosage: UNK
     Dates: start: 201110

REACTIONS (1)
  - Herpes ophthalmic [Recovered/Resolved]
